FAERS Safety Report 10518598 (Version 1)
Quarter: 2014Q4

REPORT INFORMATION
  Report Type: Spontaneous
  Country: AU (occurrence: AU)
  Receive Date: 20141015
  Receipt Date: 20141015
  Transmission Date: 20150528
  Serious: Yes (Disabling)
  Sender: FDA-Public Use
  Company Number: AU-LEO PHARMA-224651

PATIENT
  Sex: Female
  Weight: 65 kg

DRUGS (1)
  1. PICATO [Suspect]
     Active Substance: INGENOL MEBUTATE
     Indication: ACTINIC KERATOSIS
     Dates: start: 20131111, end: 20131112

REACTIONS (7)
  - Incorrect drug administration duration [Unknown]
  - Generalised erythema [Unknown]
  - Periorbital oedema [Unknown]
  - Application site pain [Unknown]
  - Circumoral oedema [Unknown]
  - Application site pustules [Unknown]
  - Application site erythema [Unknown]
